FAERS Safety Report 16285821 (Version 1)
Quarter: 2019Q2

REPORT INFORMATION
  Report Type: Spontaneous
  Country: GB (occurrence: GB)
  Receive Date: 20190508
  Receipt Date: 20190508
  Transmission Date: 20190711
  Serious: Yes (Other)
  Sender: FDA-Public Use
  Company Number: GB-GLAXOSMITHKLINE-GB2019GSK076809

PATIENT
  Age: 75 Year
  Sex: Female

DRUGS (1)
  1. VENTOLIN [Suspect]
     Active Substance: ALBUTEROL SULFATE
     Indication: ASTHMA
     Dosage: UNK

REACTIONS (4)
  - Asthma [Unknown]
  - Chronic inflammatory demyelinating polyradiculoneuropathy [Unknown]
  - Guillain-Barre syndrome [Unknown]
  - Bronchitis [Unknown]

NARRATIVE: CASE EVENT DATE: 201809
